FAERS Safety Report 7622228-X (Version None)
Quarter: 2011Q3

REPORT INFORMATION
  Report Type: 
  Country: None (occurrence: None)
  Receive Date: 20110720
  Receipt Date: 20110408
  Transmission Date: 20111222
  Serious: Yes (Other)
  Sender: FDA-Public Use
  Company Number: US-BAYER-2010-009120

PATIENT
  Age: 33 Year
  Sex: Female
  Weight: 58.503 kg

DRUGS (2)
  1. YASMIN [Suspect]
     Indication: ACNE
     Dosage: UNK
     Dates: start: 20040601
  2. YASMIN [Suspect]
     Indication: ORAL CONTRACEPTION

REACTIONS (5)
  - CHOLECYSTITIS CHRONIC [None]
  - PAIN [None]
  - ABDOMINAL PAIN [None]
  - INJURY [None]
  - BILIARY DYSKINESIA [None]
